FAERS Safety Report 9893742 (Version 1)
Quarter: 2014Q1

REPORT INFORMATION
  Report Type: Spontaneous
  Country: US (occurrence: US)
  Receive Date: 20140213
  Receipt Date: 20140213
  Transmission Date: 20141002
  Serious: No
  Sender: FDA-Public Use
  Company Number: US-BAYER-2014-017803

PATIENT
  Sex: Female

DRUGS (2)
  1. FINACEA [Suspect]
     Indication: ACNE
     Dosage: UNK
     Dates: start: 20140131
  2. FINACEA [Suspect]
     Indication: DRY SKIN

REACTIONS (2)
  - Paraesthesia [Recovering/Resolving]
  - Rash papular [Recovering/Resolving]
